FAERS Safety Report 17998459 (Version 1)
Quarter: 2020Q3

REPORT INFORMATION
  Report Type: Spontaneous
  Country: US (occurrence: US)
  Receive Date: 20200709
  Receipt Date: 20200709
  Transmission Date: 20201103
  Serious: No
  Sender: FDA-Public Use
  Company Number: US-ACCORD-183848

PATIENT
  Sex: Female

DRUGS (1)
  1. DOXAZOSIN ACCORD [Suspect]
     Active Substance: DOXAZOSIN MESYLATE
     Indication: HYPERTENSION
     Dosage: ONE TO TWO TIMES A DAY
     Route: 048
     Dates: start: 2019

REACTIONS (1)
  - Feeling abnormal [Not Recovered/Not Resolved]
